FAERS Safety Report 6133985-6 (Version None)
Quarter: 2009Q1

REPORT INFORMATION
  Report Type: 
  Country: None (occurrence: None)
  Receive Date: 20090326
  Receipt Date: 20090320
  Transmission Date: 20090719
  Serious: Yes (Disabling)
  Sender: FDA-Public Use
  Company Number: US-CELGENEUS-163-20785-09031457

PATIENT
  Sex: Female

DRUGS (4)
  1. THALOMID [Suspect]
     Indication: MULTIPLE MYELOMA
     Route: 048
     Dates: start: 20081201
  2. THALOMID [Suspect]
     Dosage: 50-100MG
     Route: 048
     Dates: start: 20041001, end: 20050501
  3. THALOMID [Suspect]
     Dosage: 200-100MG
     Route: 048
     Dates: start: 20050501, end: 20060201
  4. THALOMID [Suspect]
     Dosage: 50-100MG
     Route: 048
     Dates: start: 20060301, end: 20081101

REACTIONS (3)
  - ABASIA [None]
  - FATIGUE [None]
  - MYELOMA RECURRENCE [None]
